FAERS Safety Report 9261004 (Version 1)
Quarter: 2013Q2

REPORT INFORMATION
  Report Type: Spontaneous
  Country: US (occurrence: US)
  Receive Date: 20130429
  Receipt Date: 20130429
  Transmission Date: 20140414
  Serious: No
  Sender: FDA-Public Use
  Company Number: US-AMGEN-USASP2012054595

PATIENT
  Age: 53 Year
  Sex: Female
  Weight: 55 kg

DRUGS (11)
  1. SENSIPAR [Suspect]
     Indication: HYPERPARATHYROIDISM SECONDARY
     Dosage: 30 MG, QD
     Route: 048
     Dates: start: 20090714, end: 20120828
  2. EPOGEN [Concomitant]
     Indication: PRODUCT USED FOR UNKNOWN INDICATION
     Dosage: UNK
  3. RENVELA [Concomitant]
     Dosage: UNK
  4. PREDNISONE [Concomitant]
     Indication: SYSTEMIC LUPUS ERYTHEMATOSUS
     Dosage: UNK UNK, QD
     Route: 048
     Dates: start: 20041230
  5. CALCITRIOL [Concomitant]
     Indication: OSTEODYSTROPHY
     Dosage: 5 MG, 2 TIMES/WK
     Route: 048
     Dates: start: 20120401
  6. NEPHPLEX RX [Concomitant]
     Dosage: UNK
  7. COLACE [Concomitant]
     Dosage: UNK
  8. NEXIUM                             /01479302/ [Concomitant]
     Indication: GASTROINTESTINAL DISORDER
     Dosage: 40 MG, QD
     Route: 048
     Dates: start: 20030424
  9. MEGACE [Concomitant]
     Indication: INCREASED APPETITE
     Dosage: 10 MG, QD
     Route: 048
     Dates: start: 20120522
  10. PROCARDIA                          /00340701/ [Concomitant]
     Dosage: UNK
  11. AMBIEN [Concomitant]
     Indication: SLEEP DISORDER
     Dosage: 5 MG, QD
     Route: 048
     Dates: start: 20050215

REACTIONS (2)
  - Swelling face [Recovered/Resolved]
  - Rash [Recovered/Resolved]
